FAERS Safety Report 4614426-4 (Version None)
Quarter: 2005Q1

REPORT INFORMATION
  Report Type: 
  Country: None (occurrence: None)
  Receive Date: 20050315
  Receipt Date: 20050308
  Transmission Date: 20050727
  Serious: No
  Sender: FDA-Public Use
  Company Number: 2005AC00142

PATIENT
  Age: 29 Year
  Sex: Female

DRUGS (4)
  1. QUETIAPINE [Suspect]
     Indication: PSYCHOTIC DISORDER
     Dosage: 600 MG DAILY PO
     Route: 048
  2. QUETIAPINE [Suspect]
     Indication: PSYCHOTIC DISORDER
     Dosage: 600 MG DAILY PO
     Route: 048
  3. ZIPRASIDONE [Suspect]
     Indication: PSYCHOTIC DISORDER
     Dosage: 40 MG DAILY PO
     Route: 048
  4. ZIPRASIDONE [Suspect]
     Indication: PSYCHOTIC DISORDER
     Dosage: 120 MG DAILY PAR

REACTIONS (4)
  - ANAEMIA MACROCYTIC [None]
  - BLOOD DISORDER [None]
  - FULL BLOOD COUNT DECREASED [None]
  - MYELODYSPLASTIC SYNDROME [None]
